FAERS Safety Report 6356987-3 (Version None)
Quarter: 2009Q3

REPORT INFORMATION
  Report Type: 
  Country: None (occurrence: None)
  Receive Date: 20090915
  Receipt Date: 20090903
  Transmission Date: 20100115
  Serious: Yes (Congenital Anomaly, Other)
  Sender: FDA-Public Use
  Company Number: DK-CELGENEUS-167-20484-09090445

PATIENT
  Sex: Female
  Weight: 4.14 kg

DRUGS (7)
  1. INNOHEP [Suspect]
     Route: 064
     Dates: start: 20061216, end: 20070305
  2. SALBUTAMOL [Concomitant]
     Route: 064
     Dates: end: 20070306
  3. PULMICORT-100 [Concomitant]
     Route: 064
     Dates: end: 20070306
  4. PARACETAMOL [Concomitant]
     Route: 064
     Dates: start: 20061216, end: 20061218
  5. CODEINE PHOSPHATE [Concomitant]
     Route: 064
     Dates: start: 20061216, end: 20061217
  6. GAVISCON [Concomitant]
     Route: 064
     Dates: start: 20061218, end: 20061218
  7. SODIUM CITRATE [Concomitant]
     Route: 064
     Dates: start: 20070306, end: 20070306

REACTIONS (2)
  - DRUG EXPOSURE DURING PREGNANCY [None]
  - TALIPES [None]
